FAERS Safety Report 15014796 (Version 1)
Quarter: 2018Q2

REPORT INFORMATION
  Report Type: Spontaneous
  Country: US (occurrence: US)
  Receive Date: 20180615
  Receipt Date: 20180615
  Transmission Date: 20180711
  Serious: Yes (Other)
  Sender: FDA-Public Use
  Company Number: PHEH2018US023670

PATIENT
  Age: 56 Year
  Sex: Male
  Weight: 112.3 kg

DRUGS (1)
  1. COSENTYX [Suspect]
     Active Substance: SECUKINUMAB
     Indication: PSORIASIS
     Dosage: UNK
     Route: 065
     Dates: start: 201701

REACTIONS (2)
  - Pulmonary embolism [Recovered/Resolved]
  - Haemoptysis [Unknown]
